FAERS Safety Report 10056714 (Version 1)
Quarter: 2014Q2

REPORT INFORMATION
  Report Type: Spontaneous
  Country: CA (occurrence: CA)
  Receive Date: 20140403
  Receipt Date: 20140403
  Transmission Date: 20141212
  Serious: Yes (Hospitalization, Disabling, Other)
  Sender: FDA-Public Use
  Company Number: CA-WATSON-2014-06089

PATIENT
  Age: 76 Year
  Sex: Female

DRUGS (1)
  1. PREGABALIN (UNKNOWN) [Suspect]
     Indication: NEURALGIA
     Dosage: 300 MG, BID
     Route: 065
     Dates: start: 2008

REACTIONS (2)
  - Oedema peripheral [Recovering/Resolving]
  - Cellulitis [Recovering/Resolving]
